FAERS Safety Report 25320109 (Version 3)
Quarter: 2025Q2

REPORT INFORMATION
  Report Type: Report from Study
  Country: AT (occurrence: AT)
  Receive Date: 20250515
  Receipt Date: 20250530
  Transmission Date: 20250716
  Serious: Yes (Death, Hospitalization, Other)
  Sender: TAKEDA
  Company Number: AT-TAKEDA-2025TUS045522

PATIENT
  Sex: Male

DRUGS (2)
  1. HUMAN IMMUNOGLOBULIN G\HYALURONIDASE RECOMBINANT HUMAN [Suspect]
     Active Substance: HUMAN IMMUNOGLOBULIN G\HYALURONIDASE (HUMAN RECOMBINANT)
     Indication: Immunodeficiency
     Dosage: 20 GRAM, Q4WEEKS
     Dates: start: 20240604, end: 202409
  2. HUMAN IMMUNOGLOBULIN G\HYALURONIDASE RECOMBINANT HUMAN [Suspect]
     Active Substance: HUMAN IMMUNOGLOBULIN G\HYALURONIDASE (HUMAN RECOMBINANT)
     Indication: Secondary immunodeficiency

REACTIONS (1)
  - Lymphoma [Fatal]
